FAERS Safety Report 6844056-5 (Version None)
Quarter: 2010Q3

REPORT INFORMATION
  Report Type: 
  Country: None (occurrence: None)
  Receive Date: 20100714
  Receipt Date: 20100714
  Transmission Date: 20110219
  Serious: Yes (Other)
  Sender: FDA-Public Use
  Company Number: None

PATIENT
  Age: 58 Year
  Sex: Female

DRUGS (2)
  1. LITHIUM CITRATE [Suspect]
     Indication: AFFECTIVE DISORDER
     Dosage: 450MG BID PO
     Route: 048
     Dates: start: 20091201, end: 20100710
  2. FLUPHENAZINE DECANOATE [Suspect]
     Indication: PSYCHOTIC DISORDER
     Dosage: 25MG Q2WEEKLY IM
     Route: 030
     Dates: start: 20091005, end: 20100710

REACTIONS (1)
  - MENTAL STATUS CHANGES [None]
